FAERS Safety Report 7990798-8 (Version None)
Quarter: 2011Q4

REPORT INFORMATION
  Report Type: 
  Country: None (occurrence: None)
  Receive Date: 20111123
  Receipt Date: 20110922
  Transmission Date: 20120403
  Serious: No
  Sender: FDA-Public Use
  Company Number: 338297

PATIENT
  Age: 61 Year
  Sex: Female
  Weight: 105.6 kg

DRUGS (4)
  1. HUMALOG MIX50 (INSULIN LISPRO, INSULIN LISPRO PROTAMINE SUSPENSION) [Concomitant]
  2. LANTUS [Concomitant]
  3. VICTOZA [Suspect]
     Indication: TYPE 2 DIABETES MELLITUS
     Dosage: UNK; 1.8 MG, QD
     Dates: start: 20110622, end: 20110718
  4. VICTOZA [Suspect]
     Indication: TYPE 2 DIABETES MELLITUS
     Dosage: UNK; 1.8 MG, QD
     Dates: start: 20110719, end: 20110801

REACTIONS (1)
  - GLOMERULAR FILTRATION RATE DECREASED [None]
